FAERS Safety Report 8430211 (Version 2)
Quarter: 2012Q4

REPORT INFORMATION
  Report Type: 
  Country: BR (occurrence: BR)
  Receive Date: 20120228
  Receipt Date: 20121009
  Transmission Date: 20130627
  Serious: Yes (Other)
  Sender: FDA-Public Use
  Company Number: BR-AMGEN-BRASP2012011597

PATIENT
  Age: 53 Year
  Sex: Female
  Weight: 63 kg

DRUGS (5)
  1. ENBREL [Suspect]
     Indication: RHEUMATOID ARTHRITIS
     Dosage: 50 mg, once weekly
     Route: 058
     Dates: start: 201103
  2. ENBREL [Suspect]
     Dosage: 50 mg, weekly
     Route: 058
     Dates: start: 201109
  3. PREDSIM [Concomitant]
     Dosage: UNK
  4. TYLENOL /00020001/ [Concomitant]
     Dosage: as needed (when feeling pain)
  5. PARACETAMOL [Concomitant]
     Indication: PAIN
     Dosage: as needed (when feeling pain)

REACTIONS (5)
  - Arthritis [Not Recovered/Not Resolved]
  - Pain [Not Recovered/Not Resolved]
  - Swelling [Not Recovered/Not Resolved]
  - Drug ineffective [Not Recovered/Not Resolved]
  - Injection site haematoma [Unknown]
